FAERS Safety Report 8741534 (Version 3)
Quarter: 2016Q1

REPORT INFORMATION
  Report Type: Spontaneous
  Country: US (occurrence: US)
  Receive Date: 20120824
  Receipt Date: 20160322
  Transmission Date: 20160526
  Serious: Yes (Hospitalization, Other)
  Sender: FDA-Public Use
  Company Number: US-ASTRAZENECA-2012SE28338

PATIENT
  Age: 60 Year
  Sex: Female
  Weight: 88.5 kg

DRUGS (1)
  1. SYMBICORT [Suspect]
     Active Substance: BUDESONIDE\FORMOTEROL FUMARATE DIHYDRATE
     Indication: CHRONIC OBSTRUCTIVE PULMONARY DISEASE
     Dosage: 160/4.5 MCG TWO TIMES DAILY
     Route: 055
     Dates: start: 2011

REACTIONS (6)
  - Fall [Unknown]
  - Eye injury [Unknown]
  - Eye infection [Unknown]
  - Eye swelling [Unknown]
  - Neck pain [Unknown]
  - Limb injury [Unknown]

NARRATIVE: CASE EVENT DATE: 201512
